FAERS Safety Report 10421711 (Version 1)
Quarter: 2014Q3

REPORT INFORMATION
  Report Type: Spontaneous
  Country: BR (occurrence: BR)
  Receive Date: 20140901
  Receipt Date: 20140901
  Transmission Date: 20150326
  Serious: Yes (Other)
  Sender: FDA-Public Use
  Company Number: BR-SHIRE-BR201405263

PATIENT
  Age: 24 Year
  Sex: Female

DRUGS (1)
  1. MESACOL MMX [Suspect]
     Active Substance: MESALAMINE
     Indication: HAEMATOCHEZIA
     Dosage: 2.4 G, (TWO 1.2 G  TABLETS) 1X/DAY:QD
     Route: 048
     Dates: start: 20140812

REACTIONS (4)
  - Headache [Unknown]
  - Hypertension [Unknown]
  - Vomiting [Unknown]
  - Dysarthria [Recovering/Resolving]

NARRATIVE: CASE EVENT DATE: 20140815
